FAERS Safety Report 15657422 (Version 2)
Quarter: 2019Q1

REPORT INFORMATION
  Report Type: Report from Study
  Country: US (occurrence: US)
  Receive Date: 20181126
  Receipt Date: 20190110
  Transmission Date: 20190417
  Serious: Yes (Hospitalization, Other)
  Sender: FDA-Public Use
  Company Number: US-SAKK-2018SA316350AA

PATIENT
  Age: 80 Year
  Sex: Male

DRUGS (2)
  1. INSULIN GLARGINE [Suspect]
     Active Substance: INSULIN GLARGINE
     Indication: TYPE 2 DIABETES MELLITUS
     Dosage: UNK
  2. HUMALOG [Concomitant]
     Active Substance: INSULIN LISPRO

REACTIONS (11)
  - Pneumonia [Recovered/Resolved]
  - Renal disorder [Not Recovered/Not Resolved]
  - Gastric polyps [Recovered/Resolved]
  - Asthenia [Recovered/Resolved]
  - Catheter removal [Unknown]
  - Haemorrhage [Recovered/Resolved]
  - Injection site bruising [Not Recovered/Not Resolved]
  - Parkinson^s disease [Unknown]
  - Inability to afford medication [Unknown]
  - Blood count abnormal [Recovered/Resolved]
  - Tremor [Not Recovered/Not Resolved]

NARRATIVE: CASE EVENT DATE: 2018
